FAERS Safety Report 19073727 (Version 4)
Quarter: 2021Q4

REPORT INFORMATION
  Report Type: Spontaneous
  Country: US (occurrence: US)
  Receive Date: 20210330
  Receipt Date: 20211012
  Transmission Date: 20220303
  Serious: No
  Sender: FDA-Public Use
  Company Number: US-PFIZER INC-2019046343

PATIENT
  Age: 61 Year
  Sex: Female
  Weight: 71.67 kg

DRUGS (3)
  1. GENOTROPIN [Suspect]
     Active Substance: SOMATROPIN
     Indication: Growth hormone deficiency
     Dosage: 0.8 MG, ALTERNATE DAY
  2. GENOTROPIN [Suspect]
     Active Substance: SOMATROPIN
     Dosage: 0.6 MG, ALTERNATE DAY
  3. LEVOTHYROXINE [Concomitant]
     Active Substance: LEVOTHYROXINE
     Dosage: 100 UG, (100 UG TABLET, ONCE WELL)

REACTIONS (6)
  - Device information output issue [Unknown]
  - Device physical property issue [Unknown]
  - Poor quality device used [Unknown]
  - Limb injury [Unknown]
  - Amnesia [Unknown]
  - Eye disorder [Unknown]
